FAERS Safety Report 7026897-7 (Version None)
Quarter: 2010Q4

REPORT INFORMATION
  Report Type: 
  Country: None (occurrence: None)
  Receive Date: 20101004
  Receipt Date: 20100927
  Transmission Date: 20110411
  Serious: Yes (Death, Hospitalization)
  Sender: FDA-Public Use
  Company Number: A0883529A

PATIENT
  Age: 63 Year
  Sex: Female

DRUGS (2)
  1. HYCAMTIN [Suspect]
     Route: 042
     Dates: start: 20100823
  2. CARBOPLATIN [Concomitant]

REACTIONS (2)
  - DEATH [None]
  - DRUG INEFFECTIVE [None]
